FAERS Safety Report 9716491 (Version 1)
Quarter: 2013Q4

REPORT INFORMATION
  Report Type: Report from Study
  Country: CA (occurrence: CA)
  Receive Date: 20131127
  Receipt Date: 20131127
  Transmission Date: 20140711
  Serious: Yes (Other)
  Sender: FDA-Public Use
  Company Number: CA-ABBVIE-13P-028-1171555-00

PATIENT
  Sex: Male

DRUGS (1)
  1. HUMIRA [Suspect]
     Indication: CROHN^S DISEASE
     Route: 058
     Dates: start: 20120204, end: 20130720

REACTIONS (4)
  - Cardiac disorder [Unknown]
  - Cardiac failure [Recovering/Resolving]
  - Muscle disorder [Not Recovered/Not Resolved]
  - Oedema [Unknown]
